FAERS Safety Report 18326150 (Version 1)
Quarter: 2020Q3

REPORT INFORMATION
  Report Type: Spontaneous
  Country: IT (occurrence: IT)
  Receive Date: 20200929
  Receipt Date: 20200929
  Transmission Date: 20201103
  Serious: Yes (Hospitalization, Other)
  Sender: FDA-Public Use
  Company Number: IT-ALLERGAN-2036908US

PATIENT
  Sex: Male

DRUGS (2)
  1. CANGRELOR [Suspect]
     Active Substance: CANGRELOR
     Dosage: STARTED WITH A BOLUS 30MG/KG FOLLOWED BY INFUSION 4MG/KG/MIN
  2. MORPHINE SULFATE UNK [Suspect]
     Active Substance: MORPHINE SULFATE
     Indication: CHEST PAIN
     Dosage: 10 MG

REACTIONS (2)
  - Cardiogenic shock [Unknown]
  - Acute coronary syndrome [Recovered/Resolved]
